FAERS Safety Report 4579234-1 (Version None)
Quarter: 2005Q1

REPORT INFORMATION
  Report Type: 
  Country: None (occurrence: None)
  Receive Date: 20050208
  Receipt Date: 20050208
  Transmission Date: 20050727
  Serious: No
  Sender: FDA-Public Use
  Company Number: None

PATIENT
  Sex: Female
  Weight: 29.8 kg

DRUGS (3)
  1. STRATTERA [Suspect]
     Indication: ATTENTION DEFICIT/HYPERACTIVITY DISORDER
     Dosage: 10 MG PO BID
     Route: 048
  2. CLARITIN-D [Concomitant]
  3. AMOXACILLIN [Concomitant]

REACTIONS (2)
  - CONDITION AGGRAVATED [None]
  - TIC [None]
